FAERS Safety Report 8406004-6 (Version None)
Quarter: 2012Q2

REPORT INFORMATION
  Report Type: 
  Country: None (occurrence: None)
  Receive Date: 20120604
  Receipt Date: 20120601
  Transmission Date: 20120825
  Serious: Yes (Other)
  Sender: FDA-Public Use
  Company Number: CA-JNJFOC-20120303695

PATIENT
  Sex: Female
  Weight: 111.59 kg

DRUGS (4)
  1. REMICADE [Suspect]
     Indication: COLITIS ULCERATIVE
     Route: 042
  2. REMICADE [Suspect]
     Route: 042
  3. REMICADE [Suspect]
     Indication: CROHN'S DISEASE
     Route: 042
     Dates: end: 20110627
  4. REMICADE [Suspect]
     Route: 042
     Dates: end: 20110627

REACTIONS (2)
  - GALLBLADDER OPERATION [None]
  - MATERNAL EXPOSURE DURING PREGNANCY [None]
